FAERS Safety Report 12436130 (Version 1)
Quarter: 2016Q2

REPORT INFORMATION
  Report Type: Spontaneous
  Country: US (occurrence: US)
  Receive Date: 20160604
  Receipt Date: 20160604
  Transmission Date: 20160815
  Serious: Yes (Hospitalization)
  Sender: FDA-Public Use
  Company Number: US-BIOGEN-2016BI00244776

PATIENT
  Age: 62 Year
  Sex: Female

DRUGS (2)
  1. AVONEX [Suspect]
     Active Substance: INTERFERON BETA-1A
     Indication: MULTIPLE SCLEROSIS
     Route: 030
     Dates: start: 201408, end: 201603
  2. AVONEX [Suspect]
     Active Substance: INTERFERON BETA-1A
     Route: 030
     Dates: start: 201605

REACTIONS (4)
  - Influenza like illness [Unknown]
  - Injection site cellulitis [Unknown]
  - Micturition urgency [Unknown]
  - Urine output increased [Unknown]

NARRATIVE: CASE EVENT DATE: 201605
